FAERS Safety Report 13698055 (Version 1)
Quarter: 2017Q2

REPORT INFORMATION
  Report Type: Spontaneous
  Country: FR (occurrence: FR)
  Receive Date: 20170628
  Receipt Date: 20170628
  Transmission Date: 20170830
  Serious: Yes (Hospitalization)
  Sender: FDA-Public Use
  Company Number: FR-TEVA-780822ROM

PATIENT
  Age: 63 Year
  Sex: Male

DRUGS (12)
  1. HOLOXAN [Suspect]
     Active Substance: IFOSFAMIDE
     Dosage: 6000 MILLIGRAM DAILY; 6000 MILLIGRAM; SECOND COURSE OF CHEMOTHERAPY
     Route: 042
     Dates: start: 20170519, end: 20170520
  2. DOXORUBICINE TEVA [Suspect]
     Active Substance: DOXORUBICIN
     Indication: NASAL SINUS CANCER
     Route: 042
     Dates: start: 20170429, end: 20170429
  3. MONO-TILDIEM [Concomitant]
     Active Substance: DILTIAZEM HYDROCHLORIDE
  4. MOLSIDOMINE [Concomitant]
     Active Substance: MOLSIDOMINE
  5. DOXORUBICINE TEVA [Suspect]
     Active Substance: DOXORUBICIN
     Dosage: 120 MILLIGRAM DAILY; 120 MILLIGRAM; SECOND COURSE OF CHEMOTHERAPY
     Route: 042
     Dates: start: 20170519, end: 20170519
  6. HYZAAR [Concomitant]
     Active Substance: HYDROCHLOROTHIAZIDE\LOSARTAN POTASSIUM
  7. RAMIPRIL. [Concomitant]
     Active Substance: RAMIPRIL
  8. HOLOXAN [Suspect]
     Active Substance: IFOSFAMIDE
     Indication: NASAL SINUS CANCER
     Dosage: 6000 MILLIGRAM DAILY; 6000 MILLIGRAM; FIRST COURSE OF CHEMOTHERAPY
     Route: 042
     Dates: start: 20170429, end: 20170430
  9. CISPLATINE ACCORD [Suspect]
     Active Substance: CISPLATIN
     Indication: NASAL SINUS CANCER
     Dosage: FIRST COURSE OF CHEMOTHERAPY
     Route: 042
     Dates: start: 20170501, end: 20170501
  10. KARDEGIC [Concomitant]
     Active Substance: ASPIRIN LYSINE
  11. AMLOR [Concomitant]
     Active Substance: AMLODIPINE BESYLATE
  12. SIMVASTATINE [Concomitant]
     Active Substance: SIMVASTATIN

REACTIONS (1)
  - Acute kidney injury [Recovered/Resolved]

NARRATIVE: CASE EVENT DATE: 20170525
